FAERS Safety Report 8843626 (Version 2)
Quarter: 2012Q4

REPORT INFORMATION
  Report Type: Report from Study
  Country: US (occurrence: US)
  Receive Date: 20121016
  Receipt Date: 20121109
  Transmission Date: 20130627
  Serious: Yes (Hospitalization)
  Sender: FDA-Public Use
  Company Number: US-ROCHE-1075546

PATIENT
  Sex: Female

DRUGS (8)
  1. PEG-INTERFERON ALFA 2A [Suspect]
     Indication: CHRONIC HEPATITIS C
     Route: 065
     Dates: start: 20120515
  2. PEG-INTERFERON ALFA 2A [Suspect]
     Route: 065
  3. TELAPREVIR [Suspect]
     Indication: CHRONIC HEPATITIS C
     Route: 065
     Dates: start: 20120515
  4. RIBAVIRIN [Suspect]
     Indication: CHRONIC HEPATITIS C
     Dosage: 400 mg/day divided doses
     Route: 065
     Dates: start: 20120515
  5. RIBAVIRIN [Suspect]
     Indication: ARTHRITIS
     Dosage: divided doses
     Route: 065
  6. RIBAVIRIN [Suspect]
     Indication: SCIATICA
     Dosage: divided doses
     Route: 065
  7. RIBAVIRIN [Suspect]
     Indication: HEPATIC CIRRHOSIS
  8. ZOLOFT [Concomitant]
     Route: 065

REACTIONS (18)
  - Haemorrhoids [Unknown]
  - Muscle spasms [Unknown]
  - Muscle spasms [Unknown]
  - Weight increased [Unknown]
  - Memory impairment [Unknown]
  - Anaemia [Unknown]
  - Vision blurred [Unknown]
  - Fatigue [Unknown]
  - Abdominal discomfort [Unknown]
  - Diarrhoea [Unknown]
  - Anal haemorrhage [Unknown]
  - Anorectal discomfort [Unknown]
  - Pruritus [Unknown]
  - Sciatica [Unknown]
  - Dry mouth [Unknown]
  - Arthralgia [Unknown]
  - Myalgia [Unknown]
  - Confusional state [Unknown]
